FAERS Safety Report 13975637 (Version 5)
Quarter: 2017Q4

REPORT INFORMATION
  Report Type: Report from Study
  Country: US (occurrence: US)
  Receive Date: 20170915
  Receipt Date: 20171107
  Transmission Date: 20180321
  Serious: No
  Sender: FDA-Public Use
  Company Number: US-AMGEN-USASL2017139491

PATIENT
  Age: 13 Year
  Sex: Female
  Weight: 64.85 kg

DRUGS (1)
  1. ENBREL [Suspect]
     Active Substance: ETANERCEPT
     Indication: PSORIASIS
     Dosage: 50 MG, QWK
     Route: 065
     Dates: start: 20170530

REACTIONS (7)
  - Muscle strain [Unknown]
  - Off label use [Unknown]
  - Myalgia [Unknown]
  - Drug effect incomplete [Unknown]
  - Depression [Unknown]
  - Weight increased [Unknown]
  - Adverse reaction [Recovered/Resolved]

NARRATIVE: CASE EVENT DATE: 2017
